FAERS Safety Report 10149555 (Version 2)
Quarter: 2014Q2

REPORT INFORMATION
  Report Type: Spontaneous
  Country: US (occurrence: US)
  Receive Date: 20140502
  Receipt Date: 20140613
  Transmission Date: 20141212
  Serious: No
  Sender: FDA-Public Use
  Company Number: US-PFIZER INC-2014119620

PATIENT
  Age: 72 Year
  Sex: Female

DRUGS (5)
  1. PREMARIN [Suspect]
     Dosage: 1.25 MG, 1X/DAY
     Route: 048
     Dates: start: 1984
  2. PREMARIN [Suspect]
     Dosage: 0.625 MG, 1X/DAY
     Route: 048
     Dates: start: 2011
  3. PREMARIN [Suspect]
     Dosage: 0.03 MG, 1X/DAY
     Route: 048
     Dates: start: 2013
  4. PREMARIN [Suspect]
     Dosage: UNK
     Route: 067
  5. DICYCLOMINE [Concomitant]
     Indication: GASTROINTESTINAL DISORDER
     Dosage: UNK

REACTIONS (3)
  - Hot flush [Unknown]
  - Sleep disorder [Unknown]
  - Activities of daily living impaired [Unknown]
